FAERS Safety Report 4527895-5 (Version None)
Quarter: 2004Q4

REPORT INFORMATION
  Report Type: 
  Country: None (occurrence: None)
  Receive Date: 20041123
  Receipt Date: 20040923
  Transmission Date: 20050328
  Serious: Yes (Hospitalization, Other)
  Sender: FDA-Public Use
  Company Number: US-JNJFOC-20040908268

PATIENT
  Age: 30 Year
  Sex: Male

DRUGS (1)
  1. RISPERDAL [Suspect]
     Indication: DELUSION
     Dosage: 37.5 MG, 1 IN 2 WEEK, INTRAMUSCULAR
     Route: 030
     Dates: start: 20040801, end: 20040914

REACTIONS (1)
  - PRIAPISM [None]
